FAERS Safety Report 5622006-7 (Version None)
Quarter: 2008Q1

REPORT INFORMATION
  Report Type: 
  Country: None (occurrence: None)
  Receive Date: 20080211
  Receipt Date: 20080206
  Transmission Date: 20080703
  Serious: Yes (Death)
  Sender: FDA-Public Use
  Company Number: JP-JNJFOC-20080202003

PATIENT
  Sex: Male
  Weight: 44 kg

DRUGS (5)
  1. FINIBAX [Suspect]
     Indication: PNEUMONIA
     Route: 041
  2. AVELOX [Suspect]
     Indication: PROPHYLAXIS
     Route: 048
  3. AUGMENTIN '250' [Concomitant]
     Indication: PROPHYLAXIS
     Route: 048
  4. MAGMITT [Concomitant]
     Indication: PROPHYLAXIS
     Route: 048
  5. GLIMICRON [Concomitant]
     Indication: DIABETES MELLITUS
     Route: 048

REACTIONS (5)
  - BLOOD SODIUM INCREASED [None]
  - BLOOD UREA INCREASED [None]
  - DIABETES MELLITUS [None]
  - DISEASE PROGRESSION [None]
  - DRUG ERUPTION [None]
